FAERS Safety Report 21454258 (Version 1)
Quarter: 2022Q4

REPORT INFORMATION
  Report Type: Spontaneous
  Country: US (occurrence: US)
  Receive Date: 20221013
  Receipt Date: 20221013
  Transmission Date: 20230112
  Serious: Yes (Other)
  Sender: FDA-Public Use
  Company Number: US-SA-SAC20221012001861

PATIENT
  Age: 53 Year
  Sex: Male

DRUGS (2)
  1. ZANTAC [Suspect]
     Active Substance: RANITIDINE HYDROCHLORIDE
     Indication: Dyspepsia
     Dosage: 150 MG; QD
     Route: 065
     Dates: start: 200906, end: 201903
  2. ZANTAC [Suspect]
     Active Substance: RANITIDINE HYDROCHLORIDE
     Indication: Hyperchlorhydria

REACTIONS (5)
  - Prostate cancer stage II [Unknown]
  - Lung carcinoma cell type unspecified stage IV [Unknown]
  - Brain neoplasm malignant [Unknown]
  - Lung disorder [Unknown]
  - Prostatic disorder [Unknown]

NARRATIVE: CASE EVENT DATE: 20141001
